FAERS Safety Report 8584536-8 (Version None)
Quarter: 2012Q3

REPORT INFORMATION
  Report Type: 
  Country: None (occurrence: None)
  Receive Date: 20120810
  Receipt Date: 20120807
  Transmission Date: 20120928
  Serious: Yes (Other)
  Sender: FDA-Public Use
  Company Number: US-PFIZER INC-2012192131

PATIENT
  Sex: Male

DRUGS (1)
  1. ADVIL [Suspect]
     Indication: PAIN
     Dosage: 200 MG, UNK
     Dates: start: 20120806

REACTIONS (2)
  - ABDOMINAL DISCOMFORT [None]
  - HAEMATOCHEZIA [None]
